FAERS Safety Report 9816072 (Version 2)
Quarter: 2014Q2

REPORT INFORMATION
  Report Type: Report from Study
  Country: GB (occurrence: GB)
  Receive Date: 20140114
  Receipt Date: 20140408
  Transmission Date: 20141212
  Serious: Yes (Hospitalization)
  Sender: FDA-Public Use
  Company Number: GB-CELGENEUS-167-50794-14010495

PATIENT
  Age: 67 Year
  Sex: Male
  Weight: 64.4 kg

DRUGS (7)
  1. VIDAZA [Suspect]
     Indication: ACUTE MYELOID LEUKAEMIA
     Dosage: 130 MILLIGRAM
     Route: 058
     Dates: start: 20131118
  2. ROMIDEPSIN [Suspect]
     Indication: ACUTE MYELOID LEUKAEMIA
     Dosage: 15 MILLIGRAM
     Route: 041
     Dates: start: 20131126
  3. FINASTERIDE [Concomitant]
     Indication: BENIGN PROSTATIC HYPERPLASIA
     Route: 065
     Dates: start: 201105
  4. OMEPRAZOLE [Concomitant]
     Indication: ANTACID THERAPY
     Route: 065
     Dates: start: 20131121
  5. POSACONAZOLE [Concomitant]
     Indication: ANTIFUNGAL PROPHYLAXIS
     Route: 065
     Dates: start: 20131204
  6. ONDANSETRON [Concomitant]
     Indication: ANTIEMETIC SUPPORTIVE CARE
     Route: 065
     Dates: start: 20131118
  7. PEPTAC [Concomitant]
     Indication: ANTACID THERAPY
     Route: 065
     Dates: start: 20131121

REACTIONS (3)
  - Lung infection [Recovered/Resolved]
  - Anaemia [Recovered/Resolved]
  - Hypoxia [Recovered/Resolved]
